FAERS Safety Report 20414456 (Version 1)
Quarter: 2022Q1

REPORT INFORMATION
  Report Type: Spontaneous
  Country: GR (occurrence: GR)
  Receive Date: 20220202
  Receipt Date: 20220202
  Transmission Date: 20220423
  Serious: Yes (Death, Other)
  Sender: FDA-Public Use
  Company Number: GR-CELLTRION INC.-2022GR000901

PATIENT

DRUGS (5)
  1. RITUXIMAB [Suspect]
     Active Substance: RITUXIMAB
     Indication: Marginal zone lymphoma refractory
     Dosage: 375 MG/M2, ON CYCLE 1 DAY 1 (C1D1)
     Route: 042
  2. RITUXIMAB [Suspect]
     Active Substance: RITUXIMAB
     Dosage: 1400MG ON D1 OF C2-8 (21 DAY CYCLE) AS AN INDUCTION
     Route: 058
  3. ATEZOLIZUMAB [Suspect]
     Active Substance: ATEZOLIZUMAB
     Indication: Marginal zone lymphoma refractory
     Dosage: 1200 MG, (CYCLE 1 DAY 1) C1D1
     Route: 042
  4. ATEZOLIZUMAB [Suspect]
     Active Substance: ATEZOLIZUMAB
     Dosage: 1200 MG, D1 OF C2-8 (21-DAY CYCLE) AS INDUCTION
     Route: 042
  5. ATEZOLIZUMAB [Suspect]
     Active Substance: ATEZOLIZUMAB
     Dosage: D1 OF C9 AND CONTINUED FOR 10 CYCLES
     Route: 042

REACTIONS (3)
  - Pneumonia [Fatal]
  - Off label use [Unknown]
  - Off label use [Unknown]
